FAERS Safety Report 24045059 (Version 1)
Quarter: 2024Q3

REPORT INFORMATION
  Report Type: Other
  Country: CN (occurrence: CN)
  Receive Date: 20240703
  Receipt Date: 20240703
  Transmission Date: 20241017
  Serious: Yes (Hospitalization, Other)
  Sender: CAPLIN POINT LABORATORIES
  Company Number: CN-Caplin Steriles Limited-2158798

PATIENT
  Age: 29 Year
  Sex: Male

DRUGS (1)
  1. ETOMIDATE [Suspect]
     Active Substance: ETOMIDATE
     Indication: Product used for unknown indication
     Route: 055

REACTIONS (1)
  - Hypokalaemia [Recovered/Resolved]
